FAERS Safety Report 17021178 (Version 1)
Quarter: 2019Q4

REPORT INFORMATION
  Report Type: Spontaneous
  Country: GB (occurrence: GB)
  Receive Date: 20191112
  Receipt Date: 20191112
  Transmission Date: 20200122
  Serious: Yes (Other)
  Sender: FDA-Public Use
  Company Number: GB-009507513-1911GBR002059

PATIENT
  Age: 26 Year
  Sex: Female
  Weight: 85 kg

DRUGS (1)
  1. NEXPLANON [Suspect]
     Active Substance: ETONOGESTREL
     Indication: CONTRACEPTION
     Dosage: UNK
     Route: 051
     Dates: start: 20130401, end: 20141001

REACTIONS (1)
  - Fibroadenoma of breast [Recovered/Resolved]

NARRATIVE: CASE EVENT DATE: 20140601
